FAERS Safety Report 23270265 (Version 1)
Quarter: 2023Q4

REPORT INFORMATION
  Report Type: Spontaneous
  Country: FR (occurrence: FR)
  Receive Date: 20231207
  Receipt Date: 20231207
  Transmission Date: 20240110
  Serious: Yes (Death, Hospitalization)
  Sender: FDA-Public Use
  Company Number: None

PATIENT
  Age: 78 Year
  Sex: Male
  Weight: 84 kg

DRUGS (8)
  1. CAPECITABINE [Suspect]
     Active Substance: CAPECITABINE
     Indication: Adenocarcinoma of colon
     Dosage: DAILY DOSE: 4 GRAM
     Route: 048
     Dates: start: 20231012, end: 20231026
  2. OXALIPLATIN [Suspect]
     Active Substance: OXALIPLATIN
     Indication: Adenocarcinoma of colon
     Route: 042
     Dates: start: 20231012, end: 20231012
  3. FLECAINIDE [Concomitant]
     Active Substance: FLECAINIDE
  4. VOGALENE [Concomitant]
     Active Substance: METOPIMAZINE
  5. ACETAMINOPHEN [Concomitant]
     Active Substance: ACETAMINOPHEN
  6. ESOMEPRAZOLE [Concomitant]
     Active Substance: ESOMEPRAZOLE
  7. FENOFIBRATE [Concomitant]
     Active Substance: FENOFIBRATE
  8. ELIQUIS [Concomitant]
     Active Substance: APIXABAN

REACTIONS (13)
  - Septic shock [Fatal]
  - Diarrhoea [Not Recovered/Not Resolved]
  - Asthenia [Unknown]
  - Hypokalaemia [Unknown]
  - Hypovolaemia [Unknown]
  - Acute kidney injury [Unknown]
  - Malaise [Unknown]
  - Hypotension [Unknown]
  - Hypovolaemic shock [Unknown]
  - Metabolic acidosis [Unknown]
  - Intestinal infarction [Unknown]
  - Venous thrombosis [Unknown]
  - Beta haemolytic streptococcal infection [Unknown]

NARRATIVE: CASE EVENT DATE: 20231012
